FAERS Safety Report 15730566 (Version 1)
Quarter: 2018Q4

REPORT INFORMATION
  Report Type: Spontaneous
  Country: CL (occurrence: CL)
  Receive Date: 20181217
  Receipt Date: 20181217
  Transmission Date: 20190205
  Serious: Yes (Other)
  Sender: FDA-Public Use
  Company Number: CL-ALLERGAN-1857703US

PATIENT
  Age: 34 Year
  Sex: Female

DRUGS (7)
  1. IPILIMUMAB [Concomitant]
     Active Substance: IPILIMUMAB
     Indication: MALIGNANT MELANOMA
     Dosage: UNK
     Dates: start: 201605, end: 201608
  2. OPIOIDS [Concomitant]
     Active Substance: UNSPECIFIED INGREDIENT
     Indication: PATHOLOGICAL FRACTURE
  3. CEFTRIAXONE. [Concomitant]
     Active Substance: CEFTRIAXONE
     Indication: LISTERIOSIS
     Dosage: UNK
     Route: 042
     Dates: start: 201608, end: 201608
  4. AMPICILLIN [Concomitant]
     Active Substance: AMPICILLIN
     Indication: LISTERIOSIS
     Dosage: UNK
     Route: 042
     Dates: start: 201608, end: 201608
  5. NIVOLUMAB [Concomitant]
     Active Substance: NIVOLUMAB
     Indication: MALIGNANT MELANOMA
     Dosage: UNK
     Dates: start: 201605, end: 201608
  6. URSODEOXYCHOLIC ACID UNK [Suspect]
     Active Substance: URSODIOL
     Indication: CHOLESTASIS
     Dosage: UNK
     Route: 065
     Dates: start: 201608, end: 201608
  7. ACETAMINOPHEN. [Concomitant]
     Active Substance: ACETAMINOPHEN
     Indication: PATHOLOGICAL FRACTURE

REACTIONS (10)
  - Autoimmune hepatitis [Recovering/Resolving]
  - Placental insufficiency [Unknown]
  - Placental disorder [Unknown]
  - Jaundice [Recovering/Resolving]
  - Pruritus [Recovering/Resolving]
  - Malignant neoplasm progression [Recovering/Resolving]
  - Exposure during pregnancy [Unknown]
  - Off label use [Unknown]
  - Premature labour [Unknown]
  - Bilirubin conjugated increased [Recovering/Resolving]
